FAERS Safety Report 5216748-5 (Version None)
Quarter: 2007Q1

REPORT INFORMATION
  Report Type: 
  Country: None (occurrence: None)
  Receive Date: 20070118
  Receipt Date: 20061213
  Transmission Date: 20070707
  Serious: Yes (Hospitalization)
  Sender: FDA-Public Use
  Company Number: 2006SP008427

PATIENT
  Age: 24 Year
  Sex: Female

DRUGS (2)
  1. CELESTAMINE TAB [Suspect]
     Indication: PHARYNGOLARYNGEAL PAIN
     Dosage: PO
     Route: 048
     Dates: start: 20061104, end: 20061105
  2. COLD RELIEF [Concomitant]

REACTIONS (2)
  - RASH GENERALISED [None]
  - TOXIC SKIN ERUPTION [None]
